FAERS Safety Report 12610880 (Version 2)
Quarter: 2017Q1

REPORT INFORMATION
  Report Type: Spontaneous
  Country: US (occurrence: US)
  Receive Date: 20160801
  Receipt Date: 20170201
  Transmission Date: 20170428
  Serious: No
  Sender: FDA-Public Use
  Company Number: US-PFIZER INC-2016353653

PATIENT
  Age: 74 Year
  Sex: Male

DRUGS (3)
  1. RIFAMPIN. [Suspect]
     Active Substance: RIFAMPIN
     Dosage: UNK
  2. DURICEF [Suspect]
     Active Substance: CEFADROXIL
     Dosage: UNK
  3. SINEMET [Suspect]
     Active Substance: CARBIDOPA\LEVODOPA
     Dosage: UNK

REACTIONS (1)
  - Drug hypersensitivity [Unknown]
